FAERS Safety Report 18055003 (Version 3)
Quarter: 2020Q3

REPORT INFORMATION
  Report Type: Report from Study
  Country: US (occurrence: US)
  Receive Date: 20200722
  Receipt Date: 20200821
  Transmission Date: 20201103
  Serious: Yes (Hospitalization)
  Sender: FDA-Public Use
  Company Number: US-PFIZER INC-2020270547

PATIENT
  Age: 66 Year
  Sex: Female
  Weight: 90.25 kg

DRUGS (17)
  1. PF?05212384 [Suspect]
     Active Substance: GEDATOLISIB
     Indication: BREAST CANCER METASTATIC
     Dosage: 150 MG, ON DAYS 1, 8, 15, 22 OF EACH 28 DAYS CYCLE
     Route: 042
     Dates: start: 20180806, end: 20200716
  2. APIXABAN [Concomitant]
     Active Substance: APIXABAN
     Indication: CARDIAC FAILURE CONGESTIVE
     Dosage: 5 MG, 2X/DAY
     Route: 048
     Dates: start: 20190511
  3. BENADRYL [Concomitant]
     Active Substance: DIPHENHYDRAMINE HYDROCHLORIDE
     Indication: SINUS PAIN
     Dosage: 50 MG, AS NEEDED
     Route: 048
     Dates: start: 20190222
  4. PALBOCICLIB [Suspect]
     Active Substance: PALBOCICLIB
     Indication: BREAST CANCER METASTATIC
     Dosage: 100 MG, ONCE DAILY FOR 21 DAYS ON/ 7 DAYS OFF FOR EACH 28?DAY CYCLE
     Route: 048
     Dates: start: 20180806
  5. DOCUSATE [Concomitant]
     Active Substance: DOCUSATE
     Indication: CONSTIPATION
     Dosage: 100 MG, AS NEEDED
     Route: 048
     Dates: start: 201712
  6. MAGNESIUM HYDROXIDE. [Concomitant]
     Active Substance: MAGNESIUM HYDROXIDE
     Indication: CONSTIPATION
     Dosage: UNK, AS NEEDED
     Route: 048
  7. SYNTHROID [Concomitant]
     Active Substance: LEVOTHYROXINE SODIUM
     Indication: HYPOTHYROIDISM
     Dosage: 150 UG, 1X/DAY
     Route: 048
     Dates: start: 2014
  8. XGEVA [Concomitant]
     Active Substance: DENOSUMAB
     Indication: METASTASES TO BONE
     Dosage: 120 MG
     Route: 058
  9. INSULIN [Concomitant]
     Active Substance: INSULIN NOS
     Indication: DIABETES MELLITUS
     Dosage: 0.08 ML, AS NEEDED
     Route: 058
     Dates: start: 201806
  10. COMPAZINE [Concomitant]
     Active Substance: PROCHLORPERAZINE MALEATE
     Indication: NAUSEA
     Dosage: 10 MG, AS NEEDED
     Route: 048
     Dates: start: 20180806
  11. VITAMIN D3 CALCIUM [Concomitant]
     Active Substance: CALCIUM\CHOLECALCIFEROL
     Indication: SUPPLEMENTATION THERAPY
     Dosage: 1 TAB, 1X/DAY
     Route: 048
  12. EXLAX [SENNOSIDE A+B] [Concomitant]
     Indication: CONSTIPATION
     Dosage: UNK, AS NEEDED
     Route: 048
  13. COLACE [Concomitant]
     Active Substance: DOCUSATE SODIUM
     Indication: CONSTIPATION
     Dosage: UNK, AS NEEDED
     Route: 048
  14. FULVESTRANT. [Suspect]
     Active Substance: FULVESTRANT
     Indication: BREAST CANCER METASTATIC
     Dosage: 500 MG, ON DAYS 1, 15 OF CYCLE 1, THEN CYCLE 2 DAY1, AND THEN DAY 28 OF EACH SUBSEQUENT CYCLE
     Route: 030
     Dates: start: 20180806
  15. ATENOLOL. [Concomitant]
     Active Substance: ATENOLOL
     Indication: HYPERTENSION
     Dosage: 12.5 MG, 1X/DAY
     Route: 048
     Dates: start: 20190228
  16. DULCOLAX (BISACODYL) [Concomitant]
     Active Substance: BISACODYL
     Indication: CONSTIPATION
     Dosage: UNK, 1X/DAY
     Route: 048
     Dates: start: 201712
  17. PEPCID [Concomitant]
     Active Substance: FAMOTIDINE
     Indication: NAUSEA
     Dosage: 20 MG, AS NEEDED
     Route: 048

REACTIONS (3)
  - Dehydration [Recovered/Resolved]
  - Pyelonephritis [Recovered/Resolved]
  - Escherichia infection [Recovered/Resolved]

NARRATIVE: CASE EVENT DATE: 20200713
